FAERS Safety Report 6097847-5 (Version None)
Quarter: 2009Q1

REPORT INFORMATION
  Report Type: 
  Country: None (occurrence: None)
  Receive Date: 20090227
  Receipt Date: 20090216
  Transmission Date: 20090719
  Serious: Yes (Other)
  Sender: FDA-Public Use
  Company Number: US-PFIZER INC-2009173413

PATIENT
  Sex: Female
  Weight: 58.957 kg

DRUGS (7)
  1. CHANTIX [Suspect]
     Indication: SMOKING CESSATION THERAPY
     Dosage: UNK
     Dates: start: 20090101, end: 20090213
  2. NORTRIPTYLINE HCL [Concomitant]
     Dosage: UNK
  3. PAXIL [Concomitant]
     Dosage: UNK
  4. ALEVE [Concomitant]
     Dosage: UNK
  5. VICODIN [Concomitant]
     Dates: end: 20090101
  6. FLEXERIL [Concomitant]
     Dates: end: 20090101
  7. SSRI [Concomitant]
     Dosage: UNK

REACTIONS (2)
  - HALLUCINATION [None]
  - LOSS OF CONSCIOUSNESS [None]
